FAERS Safety Report 7810370-X (Version None)
Quarter: 2011Q4

REPORT INFORMATION
  Report Type: 
  Country: None (occurrence: None)
  Receive Date: 20111012
  Receipt Date: 20110927
  Transmission Date: 20120403
  Serious: Yes (Other)
  Sender: FDA-Public Use
  Company Number: CA-ROCHE-764644

PATIENT
  Sex: Male
  Weight: 68 kg

DRUGS (14)
  1. HYDROMORPHONE HCL [Concomitant]
     Dosage: REPORTED DRUG: HYDROMORPH TO BE TAKEN AS NECESSARY
  2. ACTEMRA [Suspect]
     Route: 042
  3. SULFASALAZINE [Concomitant]
  4. CALCIUM CARBONATE [Concomitant]
  5. ACTEMRA [Suspect]
     Route: 042
     Dates: start: 20110127, end: 20110127
  6. PREDNISONE TAB [Concomitant]
  7. HYDROQUINONE [Concomitant]
     Dosage: DRUG: HYDROXYQUININE
  8. PANTOPRAZOLE SODIUM [Concomitant]
     Dosage: REPORTED DRUG: PANTALOC
  9. ACTEMRA [Suspect]
     Indication: RHEUMATOID ARTHRITIS
     Route: 042
     Dates: start: 20101202, end: 20101202
  10. ANAPRIL [Concomitant]
  11. CEFPROZIL [Concomitant]
     Dosage: REPORTED DRUG:CEPROZIL
  12. IRON [Concomitant]
  13. ARTHROTEC [Concomitant]
  14. HYDROCHLOROTHIAZIDE [Concomitant]
     Dosage: DRUG: HYDROCHLORIZIDE

REACTIONS (4)
  - ANAL FISTULA [None]
  - OSTEOMYELITIS [None]
  - DRUG INEFFECTIVE [None]
  - ANAL ABSCESS [None]
